FAERS Safety Report 7197849-1 (Version None)
Quarter: 2010Q4

REPORT INFORMATION
  Report Type: 
  Country: None (occurrence: None)
  Receive Date: 20101214
  Receipt Date: 20101201
  Transmission Date: 20110411
  Serious: Yes (Hospitalization)
  Sender: FDA-Public Use
  Company Number: 2010S1000389

PATIENT
  Sex: Female

DRUGS (2)
  1. DARVOCET-N 100 [Suspect]
     Indication: BACK PAIN
     Dosage: ;PRN; PO
     Route: 048
  2. LYRICA [Concomitant]

REACTIONS (2)
  - CEREBROVASCULAR ACCIDENT [None]
  - MYOCARDIAL INFARCTION [None]
